FAERS Safety Report 23959738 (Version 2)
Quarter: 2024Q2

REPORT INFORMATION
  Report Type: Spontaneous
  Country: RU (occurrence: RU)
  Receive Date: 20240611
  Receipt Date: 20240626
  Transmission Date: 20240716
  Serious: No
  Sender: FDA-Public Use
  Company Number: RU-BIOGEN-2024BI01268696

PATIENT
  Age: 36 Year
  Sex: Female

DRUGS (3)
  1. PLEGRIDY [Suspect]
     Active Substance: PEGINTERFERON BETA-1A
     Indication: Relapsing-remitting multiple sclerosis
     Route: 050
     Dates: start: 20231014
  2. PLEGRIDY [Suspect]
     Active Substance: PEGINTERFERON BETA-1A
     Route: 050
     Dates: start: 20231028
  3. PLEGRIDY [Suspect]
     Active Substance: PEGINTERFERON BETA-1A
     Route: 050
     Dates: start: 20231111, end: 20240516

REACTIONS (1)
  - Graves^ disease [Not Recovered/Not Resolved]

NARRATIVE: CASE EVENT DATE: 20240502
